FAERS Safety Report 8246998-5 (Version None)
Quarter: 2012Q1

REPORT INFORMATION
  Report Type: 
  Country: None (occurrence: None)
  Receive Date: 20120330
  Receipt Date: 20120330
  Transmission Date: 20120608
  Serious: No
  Sender: FDA-Public Use
  Company Number: None

PATIENT
  Age: 42 Year
  Sex: Female
  Weight: 86.182 kg

DRUGS (2)
  1. PREDNISONE [Suspect]
     Indication: PSORIASIS
     Dosage: ONCE DAILY
     Route: 048
     Dates: start: 20120208, end: 20120309
  2. RIFAMPIN [Concomitant]
     Indication: TUBERCULOSIS
     Dosage: TWICE DAILY
     Route: 048
     Dates: start: 20120208, end: 20120221

REACTIONS (9)
  - CONFUSIONAL STATE [None]
  - ANXIETY [None]
  - VERTIGO [None]
  - NAUSEA [None]
  - FATIGUE [None]
  - DIZZINESS [None]
  - BURNING SENSATION [None]
  - PANIC ATTACK [None]
  - BODY TEMPERATURE DECREASED [None]
